FAERS Safety Report 8160658-0 (Version None)
Quarter: 2012Q1

REPORT INFORMATION
  Report Type: 
  Country: None (occurrence: None)
  Receive Date: 20120223
  Receipt Date: 20120220
  Transmission Date: 20120608
  Serious: Yes (Other)
  Sender: FDA-Public Use
  Company Number: JP-ROCHE-1042549

PATIENT

DRUGS (1)
  1. ACTEMRA [Suspect]
     Indication: RHEUMATOID ARTHRITIS

REACTIONS (6)
  - CELLULITIS ORBITAL [None]
  - INFECTED BITES [None]
  - SOFT TISSUE INFECTION [None]
  - MEDIASTINITIS [None]
  - INJECTION SITE INFECTION [None]
  - BURSITIS [None]
